FAERS Safety Report 9918726 (Version 1)
Quarter: 2014Q1

REPORT INFORMATION
  Report Type: Spontaneous
  Country: GB (occurrence: GB)
  Receive Date: 20140224
  Receipt Date: 20140224
  Transmission Date: 20141002
  Serious: Yes (Other)
  Sender: FDA-Public Use
  Company Number: GB-ACCORD-021920

PATIENT
  Age: 49 Year
  Sex: Male
  Weight: 103 kg

DRUGS (13)
  1. AMLODIPINE [Suspect]
     Indication: PRODUCT USED FOR UNKNOWN INDICATION
     Dates: start: 20140110
  2. CLOPIDOGREL [Concomitant]
     Dates: start: 20131016, end: 20131212
  3. FLUOXETINE [Concomitant]
     Dates: start: 20131202, end: 20140101
  4. ALFUZOSIN [Concomitant]
     Dates: start: 20131016, end: 20140115
  5. LOSARTAN/LOSARTAN POTASSIUM [Concomitant]
     Dates: start: 20140124
  6. RAMIPRIL [Concomitant]
     Dates: start: 20131112, end: 20131210
  7. ACETYLSALICYLIC ACID [Concomitant]
     Dates: start: 20131018, end: 20131115
  8. IBUPROFEN [Concomitant]
     Dates: start: 20131112, end: 20131210
  9. SIMVASTATIN [Concomitant]
     Dates: start: 20131016, end: 20140113
  10. LANSOPRAZOLE [Concomitant]
     Dates: start: 20131112, end: 20131210
  11. PARACETAMOL [Concomitant]
     Dates: start: 20131016, end: 20140113
  12. LACTULOSE [Concomitant]
     Dates: start: 20131016, end: 20131101
  13. SENNA ALEXANDRINA [Concomitant]
     Dates: start: 20131016, end: 20140115

REACTIONS (1)
  - Headache [Not Recovered/Not Resolved]
